FAERS Safety Report 7822330-3 (Version None)
Quarter: 2011Q4

REPORT INFORMATION
  Report Type: 
  Country: None (occurrence: None)
  Receive Date: 20111018
  Receipt Date: 20101026
  Transmission Date: 20120403
  Serious: No
  Sender: FDA-Public Use
  Company Number: US-ASTRAZENECA-2010SE50839

PATIENT
  Age: 89 Year
  Sex: Male

DRUGS (2)
  1. SYMBICORT [Suspect]
     Indication: EMPHYSEMA
     Dosage: 180 UG BID
     Route: 055
     Dates: start: 20100701, end: 20101025
  2. SYMBICORT [Suspect]
     Indication: ASTHMA
     Dosage: 180 UG BID
     Route: 055
     Dates: start: 20100701, end: 20101025

REACTIONS (2)
  - DYSPNOEA [None]
  - DRUG DOSE OMISSION [None]
